FAERS Safety Report 11148349 (Version 4)
Quarter: 2015Q4

REPORT INFORMATION
  Report Type: Spontaneous
  Country: CA (occurrence: CA)
  Receive Date: 20150529
  Receipt Date: 20151113
  Transmission Date: 20160304
  Serious: Yes (Other)
  Sender: FDA-Public Use
  Company Number: CA-ROCHE-1585329

PATIENT
  Age: 56 Year
  Sex: Male

DRUGS (16)
  1. RITUXAN [Suspect]
     Active Substance: RITUXIMAB
     Indication: LYMPHOMA
     Route: 042
     Dates: start: 20090601, end: 20091001
  2. RITUXAN [Suspect]
     Active Substance: RITUXIMAB
     Route: 042
     Dates: start: 20130101, end: 20130801
  3. CYCLOPHOSPHAMIDE. [Suspect]
     Active Substance: CYCLOPHOSPHAMIDE
     Indication: LYMPHOMA
     Dosage: TOTAL THERAPY DURATION: 5 YEARS
     Route: 065
     Dates: start: 20090601, end: 20091001
  4. VINCRISTINE [Suspect]
     Active Substance: VINCRISTINE
     Indication: LYMPHOMA
     Dosage: THERAPY DURATION: 123 DAYS
     Route: 065
     Dates: start: 20090601, end: 20091001
  5. LACTULOSE. [Concomitant]
     Active Substance: LACTULOSE
     Dosage: AFTER RITUXAN
     Route: 065
  6. TRANEXAMIC ACID. [Concomitant]
     Active Substance: TRANEXAMIC ACID
     Dosage: AFTER RITUXAN
     Route: 065
  7. CYCLOPHOSPHAMIDE. [Suspect]
     Active Substance: CYCLOPHOSPHAMIDE
     Route: 065
     Dates: start: 20130101, end: 20130801
  8. ACYCLOVIR. [Concomitant]
     Active Substance: ACYCLOVIR
     Dosage: AFTER RITUXAN
     Route: 065
  9. NYSTATIN. [Concomitant]
     Active Substance: NYSTATIN
     Dosage: AFTER RITUXAN
     Route: 065
  10. RITUXAN [Suspect]
     Active Substance: RITUXIMAB
     Dosage: MAINTENANCE
     Route: 042
     Dates: start: 20110101, end: 20111101
  11. RITUXAN [Suspect]
     Active Substance: RITUXIMAB
     Route: 042
     Dates: start: 20140801, end: 20150101
  12. TREANDA [Suspect]
     Active Substance: BENDAMUSTINE HYDROCHLORIDE
     Indication: LYMPHOMA
     Dosage: INFUSION, POWDER FOR SOLUTION?THERAPY DURATION: 154 DAYS
     Route: 042
     Dates: start: 20140801, end: 20150101
  13. PREDNISONE. [Suspect]
     Active Substance: PREDNISONE
     Indication: LYMPHOMA
     Dosage: THERAPY DURATION: 123 DAYS
     Route: 065
     Dates: start: 20090601, end: 20091001
  14. FLUDARABINE [Suspect]
     Active Substance: FLUDARABINE PHOSPHATE
     Indication: LYMPHOMA
     Dosage: THERAPY DURATION: 213 DAYS
     Route: 065
     Dates: start: 20130101, end: 20130801
  15. PANTOPRAZOLE [Concomitant]
     Active Substance: PANTOPRAZOLE SODIUM
     Dosage: AFTER RITUXAN
     Route: 065
  16. VELCADE [Concomitant]
     Active Substance: BORTEZOMIB
     Indication: LYMPHOMA
     Dosage: 4TH LINE TREATMENT
     Route: 065

REACTIONS (1)
  - Immune thrombocytopenic purpura [Unknown]

NARRATIVE: CASE EVENT DATE: 201505
